FAERS Safety Report 4690590-6 (Version None)
Quarter: 2005Q2

REPORT INFORMATION
  Report Type: 
  Country: None (occurrence: None)
  Receive Date: 20050615
  Receipt Date: 20050511
  Transmission Date: 20051028
  Serious: Yes (Hospitalization)
  Sender: FDA-Public Use
  Company Number: JP-BOEHRINGER INGELHEIM PHARMACEUTICALS, INC.-2005-BP-07873NB

PATIENT
  Sex: Male
  Weight: 65.5 kg

DRUGS (1)
  1. MICARDIS [Suspect]
     Indication: HYPERTENSION
     Route: 048
     Dates: start: 20050401, end: 20050425

REACTIONS (2)
  - BILE DUCT CANCER [None]
  - HEPATIC FUNCTION ABNORMAL [None]
